FAERS Safety Report 23547373 (Version 3)
Quarter: 2024Q2

REPORT INFORMATION
  Report Type: Report from Study
  Country: JP (occurrence: JP)
  Receive Date: 20240221
  Receipt Date: 20240606
  Transmission Date: 20240716
  Serious: Yes (Hospitalization, Other)
  Sender: FDA-Public Use
  Company Number: JP-GSK-JP2023JPN153233

PATIENT

DRUGS (22)
  1. MEPOLIZUMAB [Suspect]
     Active Substance: MEPOLIZUMAB
     Indication: Eosinophilic granulomatosis with polyangiitis
     Dosage: 100 MG, Q4W
     Dates: start: 20180307, end: 20180829
  2. MEPOLIZUMAB [Suspect]
     Active Substance: MEPOLIZUMAB
     Dosage: 300 MG, Q4W
     Dates: start: 20180925, end: 20190220
  3. MEPOLIZUMAB [Suspect]
     Active Substance: MEPOLIZUMAB
     Dosage: 300 MG, Q6W
     Dates: start: 20190401, end: 20190401
  4. PREDONINE [Concomitant]
     Active Substance: PREDNISOLONE
     Indication: Eosinophilic granulomatosis with polyangiitis
     Dosage: 30 MG, QD
     Route: 048
     Dates: start: 20180222, end: 20180314
  5. PREDONINE [Concomitant]
     Active Substance: PREDNISOLONE
     Dosage: 25 MG, QD
     Route: 048
     Dates: start: 20180315, end: 20180410
  6. PREDONINE [Concomitant]
     Active Substance: PREDNISOLONE
     Dosage: 20 MG, QD
     Route: 048
     Dates: start: 20180411, end: 20180508
  7. PREDONINE [Concomitant]
     Active Substance: PREDNISOLONE
     Dosage: 15 MG, QD
     Route: 048
     Dates: start: 20180509, end: 20180605
  8. PREDONINE [Concomitant]
     Active Substance: PREDNISOLONE
     Dosage: 10 MG, QD
     Route: 048
     Dates: start: 20180606, end: 20180828
  9. PREDONINE [Concomitant]
     Active Substance: PREDNISOLONE
     Dosage: 7.5 MG, QD
     Route: 048
     Dates: start: 20180829, end: 20181119
  10. PREDONINE [Concomitant]
     Active Substance: PREDNISOLONE
     Dosage: 30 MG, QD
     Route: 048
     Dates: start: 20181120, end: 20181218
  11. PREDONINE [Concomitant]
     Active Substance: PREDNISOLONE
     Dosage: 25 MG, QD
     Route: 048
     Dates: start: 20181219, end: 20190108
  12. PREDONINE [Concomitant]
     Active Substance: PREDNISOLONE
     Dosage: 20 MG, QD
     Route: 048
     Dates: start: 20190109, end: 20190403
  13. PREDONINE [Concomitant]
     Active Substance: PREDNISOLONE
     Dosage: 15 MG, QD
     Route: 048
     Dates: start: 20190404
  14. METHENOLONE [Concomitant]
     Active Substance: METHENOLONE
     Dosage: UNK
  15. ALFAROL [Concomitant]
     Active Substance: ALFACALCIDOL
     Dosage: UNK
  16. ZINC [Concomitant]
     Active Substance: PYRITHIONE ZINC\ZINC\ZINC CHLORIDE
     Dosage: UNK
  17. NEXIUM [Concomitant]
     Active Substance: ESOMEPRAZOLE MAGNESIUM
     Indication: Prophylaxis against gastrointestinal ulcer
     Dosage: UNK
  18. SULFAMETHOXAZOLE\TRIMETHOPRIM [Concomitant]
     Active Substance: SULFAMETHOXAZOLE\TRIMETHOPRIM
     Indication: Antifungal prophylaxis
     Dosage: 0.5 TABLETS
  19. BONALON [Concomitant]
     Active Substance: ALENDRONATE SODIUM
     Indication: Osteoporosis prophylaxis
     Dosage: UNK
  20. VOGLIBOSE [Concomitant]
     Active Substance: VOGLIBOSE
     Indication: Steroid diabetes
     Dosage: UNK
  21. VFEND [Concomitant]
     Active Substance: VORICONAZOLE
     Indication: Pneumonia fungal
     Dosage: UNK
  22. TULOBUTEROL [Concomitant]
     Active Substance: TULOBUTEROL
     Dosage: UNK

REACTIONS (5)
  - Pneumonia aspiration [Recovered/Resolved]
  - Inappropriate schedule of product administration [Unknown]
  - Prescribed underdose [Unknown]
  - Off label use [Unknown]
  - Product use in unapproved indication [Unknown]

NARRATIVE: CASE EVENT DATE: 20190227
